FAERS Safety Report 8704924 (Version 4)
Quarter: 2012Q4

REPORT INFORMATION
  Report Type: 
  Country: US (occurrence: US)
  Receive Date: 20120803
  Receipt Date: 20120910
  Transmission Date: 20130627
  Serious: Yes (Hospitalization)
  Sender: FDA-Public Use
  Company Number: US-GILEAD-2012-0059064

PATIENT
  Age: 26 Year
  Sex: Female

DRUGS (2)
  1. LETAIRIS [Suspect]
     Indication: PULMONARY HYPERTENSION
     Dosage: 5 mg, UNK
     Route: 048
     Dates: start: 20120606
  2. LETAIRIS [Suspect]
     Indication: SICKLE CELL ANAEMIA

REACTIONS (6)
  - Sepsis [Not Recovered/Not Resolved]
  - Hepatic enzyme increased [Unknown]
  - Malaise [Unknown]
  - Sickle cell anaemia with crisis [Unknown]
  - Liver function test abnormal [Unknown]
  - Fatigue [Unknown]
